FAERS Safety Report 19657875 (Version 4)
Quarter: 2022Q1

REPORT INFORMATION
  Report Type: Other
  Country: JP (occurrence: JP)
  Receive Date: 20210804
  Receipt Date: 20220329
  Transmission Date: 20220423
  Serious: Yes (Hospitalization, Other)
  Sender: FDA-Public Use
  Company Number: JP-CHUGAI-A2020054740ROCHE

PATIENT
  Age: 54 Year
  Sex: Male
  Weight: 64.25 kg

DRUGS (4)
  1. ENTRECTINIB [Suspect]
     Active Substance: ENTRECTINIB
     Indication: Sarcoma
     Route: 048
     Dates: start: 20201211, end: 20201223
  2. ENTRECTINIB [Suspect]
     Active Substance: ENTRECTINIB
     Route: 048
     Dates: start: 20201224, end: 20201228
  3. ENTRECTINIB [Suspect]
     Active Substance: ENTRECTINIB
     Route: 048
     Dates: start: 20210102
  4. ENTRECTINIB [Suspect]
     Active Substance: ENTRECTINIB
     Dosage: ON 24/JUN/2021, HE RECEIVED MOST RECENT DOSE OF ENTRECTINIB.
     Route: 048
     Dates: start: 20210107, end: 20210628

REACTIONS (8)
  - Facial nerve disorder [Recovered/Resolved]
  - Cardiac failure [Recovering/Resolving]
  - Dizziness [Not Recovered/Not Resolved]
  - Hypoaesthesia oral [Unknown]
  - Taste disorder [Unknown]
  - Ataxia [Recovered/Resolved]
  - Nausea [Unknown]
  - Ejection fraction decreased [Recovering/Resolving]

NARRATIVE: CASE EVENT DATE: 20201224
